FAERS Safety Report 19165868 (Version 2)
Quarter: 2021Q2

REPORT INFORMATION
  Report Type: Spontaneous
  Country: US (occurrence: US)
  Receive Date: 20210421
  Receipt Date: 20210630
  Transmission Date: 20210717
  Serious: Yes (Death)
  Sender: FDA-Public Use
  Company Number: US-PFIZER INC-2021432009

PATIENT

DRUGS (3)
  1. EPINEPHRINE. [Suspect]
     Active Substance: EPINEPHRINE
     Indication: LOCAL ANAESTHESIA
     Dosage: 0.5 MG OF EACH MILLILITER OF TAC
  2. COCAINE [Suspect]
     Active Substance: COCAINE
     Indication: LOCAL ANAESTHESIA
     Dosage: 118 MG OF EACH MILLILITER OF TAC
  3. TETRACAINE. [Suspect]
     Active Substance: TETRACAINE
     Indication: LOCAL ANAESTHESIA
     Dosage: 5 MG OF EACH MILLILITER OF TAC

REACTIONS (5)
  - Exposure via mucosa [Fatal]
  - Cardio-respiratory arrest [Fatal]
  - Accidental exposure to product [Fatal]
  - Toxicity to various agents [Fatal]
  - Status epilepticus [Fatal]
